FAERS Safety Report 25250194 (Version 1)
Quarter: 2025Q2

REPORT INFORMATION
  Report Type: Spontaneous
  Country: US (occurrence: None)
  Receive Date: 20250428
  Receipt Date: 20250428
  Transmission Date: 20250717
  Serious: Yes (Disabling)
  Sender: FDA-CTU
  Company Number: None

PATIENT
  Age: 50 Year
  Sex: Female
  Weight: 66.15 kg

DRUGS (2)
  1. SEMAGLUTIDE [Suspect]
     Active Substance: SEMAGLUTIDE
     Indication: Weight decreased
     Route: 050
     Dates: start: 20250318, end: 20250416
  2. VITAMIN D3 [Concomitant]
     Active Substance: CHOLECALCIFEROL

REACTIONS (6)
  - Abdominal pain [None]
  - Nausea [None]
  - Headache [None]
  - Fatigue [None]
  - Depression [None]
  - Suspected product quality issue [None]

NARRATIVE: CASE EVENT DATE: 20250416
